FAERS Safety Report 22144668 (Version 3)
Quarter: 2024Q3

REPORT INFORMATION
  Report Type: Spontaneous
  Country: BR (occurrence: BR)
  Receive Date: 20230328
  Receipt Date: 20240930
  Transmission Date: 20241016
  Serious: Yes (Disabling, Other)
  Sender: CELLTRION
  Company Number: BR-CELLTRION INC.-2023BR006335

PATIENT

DRUGS (9)
  1. INFLIXIMAB [Suspect]
     Active Substance: INFLIXIMAB
     Indication: Ankylosing spondylitis
     Dosage: 6 AMPOULES EVERY 6 MONTHS
     Route: 042
     Dates: start: 202301
  2. INFLIXIMAB [Suspect]
     Active Substance: INFLIXIMAB
     Dosage: 6 VIALS EVERY 2 MONTHS
     Route: 042
     Dates: start: 202301
  3. INFLIXIMAB [Suspect]
     Active Substance: INFLIXIMAB
     Dosage: 6 VIALS EVERY 2 MONTHS
     Route: 042
     Dates: start: 20230322
  4. INFLIXIMAB [Suspect]
     Active Substance: INFLIXIMAB
     Dosage: 6 VIALS EVERY 2 MONTHS
     Route: 042
     Dates: start: 20230705
  5. VALPROATE SODIUM [Concomitant]
     Active Substance: VALPROATE SODIUM
     Indication: Epilepsy
     Dosage: 1 CAPSULE PER DAY; START: 18 YEARS
     Route: 048
  6. LEPTICO [Concomitant]
     Indication: Epilepsy
     Dosage: 1 CAPSULE PER DAY; START: 15 YEARS
     Route: 048
  7. CINNARIZINE [Concomitant]
     Active Substance: CINNARIZINE
     Indication: Labyrinthitis
     Dosage: 1 CAPSULE PER DAY; START: 8 YEARS
     Route: 048
  8. ATENOLOL [Concomitant]
     Active Substance: ATENOLOL
     Indication: Hypertension
     Dosage: 1 CAPSULE PER DAY; START: 10 YEARS
     Route: 048
  9. LOSARTAN [Concomitant]
     Active Substance: LOSARTAN\LOSARTAN POTASSIUM
     Indication: Hypertension
     Dosage: 1 CAPSULE PER DAY; START: 10 YEARS
     Route: 048

REACTIONS (10)
  - Burning sensation [Recovered/Resolved]
  - Feeling hot [Recovered/Resolved]
  - Loss of personal independence in daily activities [Unknown]
  - Dyspnoea [Recovered/Resolved]
  - Heart rate decreased [Recovered/Resolved]
  - Pruritus [Recovered/Resolved]
  - Arthralgia [Unknown]
  - Therapy interrupted [Unknown]
  - Product supply issue [Unknown]
  - Intentional product use issue [Unknown]
